FAERS Safety Report 9394629 (Version 1)
Quarter: 2013Q3

REPORT INFORMATION
  Report Type: Spontaneous
  Country: US (occurrence: None)
  Receive Date: 20130709
  Receipt Date: 20130709
  Transmission Date: 20140515
  Serious: Yes (Other)
  Sender: FDA-Public Use
  Company Number: None

PATIENT
  Age: 55 None
  Sex: Male
  Weight: 77.11 kg

DRUGS (2)
  1. SENSODYNE EXTRA WHITENING [Suspect]
     Dosage: I INCH STRIP 2 TIMES/DAY ORAL-TOPICAL
     Route: 048
  2. COLGATE SENSIITIVE WHITENING [Suspect]
     Dosage: 1-INCH STRIP 2 TIMES DAILY ORAL, TOPICAL

REACTIONS (1)
  - Drug ineffective [None]
